FAERS Safety Report 10241945 (Version 1)
Quarter: 2014Q2

REPORT INFORMATION
  Report Type: Spontaneous
  Country: US (occurrence: None)
  Receive Date: 20140613
  Receipt Date: 20140613
  Transmission Date: 20141212
  Serious: Yes (Hospitalization, Other)
  Sender: FDA-Public Use
  Company Number: ADR-2014-01001

PATIENT
  Age: 61 Year
  Sex: Male

DRUGS (2)
  1. BACLOFEN INTRATHECAL [Suspect]
     Indication: MUSCLE SPASTICITY
  2. DILAUDID (HYDROMORPHONE) [Suspect]

REACTIONS (3)
  - Delirium [None]
  - Mental status changes [None]
  - Muscle spasticity [None]
